FAERS Safety Report 15517323 (Version 1)
Quarter: 2018Q4

REPORT INFORMATION
  Report Type: Report from Study
  Country: TR (occurrence: TR)
  Receive Date: 20181017
  Receipt Date: 20181017
  Transmission Date: 20190205
  Serious: Yes (Hospitalization)
  Sender: FDA-Public Use
  Company Number: TR-MYLANLABS-2018M1075039

PATIENT
  Sex: Female

DRUGS (2)
  1. TRIAMCINOLONE [Suspect]
     Active Substance: TRIAMCINOLONE
     Indication: MACULAR OEDEMA
     Dosage: 9 POSTERIOR SUB-TENON INJECTIONS ADMINISTERED IN LEFT EYE
     Route: 031
  2. DEXAMETHASONE. [Suspect]
     Active Substance: DEXAMETHASONE
     Indication: MACULAR OEDEMA
     Dosage: ROUTE: INTRAVITREAL; 1 IMPLANT IN LEFT EYE
     Route: 050

REACTIONS (1)
  - Intraocular pressure increased [Recovered/Resolved]
